FAERS Safety Report 7393763-7 (Version None)
Quarter: 2011Q2

REPORT INFORMATION
  Report Type: 
  Country: None (occurrence: None)
  Receive Date: 20110405
  Receipt Date: 20110329
  Transmission Date: 20111010
  Serious: Yes (Hospitalization)
  Sender: FDA-Public Use
  Company Number: IE-AMGEN-IRLSP2011005342

PATIENT
  Age: 57 Year
  Sex: Female
  Weight: 54 kg

DRUGS (5)
  1. DEXAMETHASONE [Concomitant]
     Dosage: 8 MG, QD
     Route: 048
     Dates: start: 20110113, end: 20110116
  2. EMEND                              /01627301/ [Concomitant]
     Dosage: 8 MG, QD
     Route: 048
     Dates: start: 20110113, end: 20110116
  3. NEULASTA [Suspect]
     Indication: PRODUCT USED FOR UNKNOWN INDICATION
     Dosage: 6 MG, Q2WK
     Route: 058
     Dates: start: 20110113
  4. MOTILIUM                           /00498201/ [Concomitant]
  5. VALOID                             /00014901/ [Concomitant]

REACTIONS (6)
  - HYPOTENSION [None]
  - NON-CARDIAC CHEST PAIN [None]
  - BODY TEMPERATURE DECREASED [None]
  - ANXIETY [None]
  - DIZZINESS [None]
  - HEART RATE IRREGULAR [None]
